FAERS Safety Report 11419547 (Version 3)
Quarter: 2018Q2

REPORT INFORMATION
  Report Type: Spontaneous
  Country: AU (occurrence: AU)
  Receive Date: 20150826
  Receipt Date: 20180420
  Transmission Date: 20180711
  Serious: Yes (Hospitalization, Other)
  Sender: FDA-Public Use
  Company Number: AU-ASTRAZENECA-2015SE80315

PATIENT
  Age: 20742 Day
  Sex: Male
  Weight: 95 kg

DRUGS (7)
  1. FORXIGA [Suspect]
     Active Substance: DAPAGLIFLOZIN
     Indication: TYPE 2 DIABETES MELLITUS
     Route: 048
     Dates: end: 20150811
  2. LANTUS [Concomitant]
     Active Substance: INSULIN GLARGINE
     Dosage: 60  UNITS, AT NIGHT
  3. IRBESARTAN. [Concomitant]
     Active Substance: IRBESARTAN
     Dosage: 150 MG
  4. NOVOMIX [Concomitant]
     Active Substance: INSULIN ASPART
     Dosage: 30 (60 UNITS) IN THE MORNING
  5. NOVORAPID [Concomitant]
     Active Substance: INSULIN ASPART
     Dosage: (60 UNITS) AT DINNER
  6. DIABEX [Concomitant]
     Active Substance: METFORMIN HYDROCHLORIDE
     Dosage: 1.5 GM
     Route: 048
  7. LIPITOR [Concomitant]
     Active Substance: ATORVASTATIN CALCIUM

REACTIONS (1)
  - Diabetic ketoacidosis [Recovered/Resolved]

NARRATIVE: CASE EVENT DATE: 20150811
